FAERS Safety Report 4352180-4 (Version None)
Quarter: 2004Q2

REPORT INFORMATION
  Report Type: 
  Country: None (occurrence: None)
  Receive Date: 20040428
  Receipt Date: 20040415
  Transmission Date: 20050107
  Serious: Yes (Death, Life-Threatening)
  Sender: FDA-Public Use
  Company Number: 104914

PATIENT
  Age: 4 Year
  Sex: Male
  Weight: 41.5 kg

DRUGS (7)
  1. NUTROPIN AQ [Suspect]
     Indication: PRADER-WILLI SYNDROME
     Dosage: 0.3 MG, QD, SUBCUTANEOUS
     Route: 058
     Dates: start: 20020819, end: 20020901
  2. NUTROPIN AQ [Suspect]
     Indication: PRADER-WILLI SYNDROME
     Dosage: 0.6 MG, QD, SUBCUTANEOUS
     Route: 058
     Dates: start: 20020902, end: 20020914
  3. NUTROPIN AQ [Suspect]
     Indication: PRADER-WILLI SYNDROME
     Dosage: 1 MG, QD, SUBCUTANEOUS
     Route: 058
     Dates: start: 20020916, end: 20021103
  4. NUTROPIN AQ [Suspect]
     Indication: PRADER-WILLI SYNDROME
     Dosage: 0.6 MG, QD SUBCUTANEOUS
     Route: 058
     Dates: start: 20030101, end: 20030101
  5. NUTROPIN AQ [Suspect]
     Indication: PRADER-WILLI SYNDROME
     Dosage: 1 MG, QD, SUBCUTANEOUS
     Route: 058
     Dates: start: 20030101
  6. KEFLEX [Concomitant]
  7. FUCIDINE CAP [Concomitant]

REACTIONS (21)
  - ARRHYTHMIA [None]
  - ASTIGMATISM [None]
  - BETA HAEMOLYTIC STREPTOCOCCAL INFECTION [None]
  - EYELID FUNCTION DISORDER [None]
  - FATIGUE [None]
  - HEAD INJURY [None]
  - HEADACHE [None]
  - HYPERHIDROSIS [None]
  - HYPOXIC ENCEPHALOPATHY [None]
  - INTRACRANIAL PRESSURE INCREASED [None]
  - INTRAVENTRICULAR HAEMORRHAGE [None]
  - NASAL CONGESTION [None]
  - NASOPHARYNGITIS [None]
  - PNEUMONIA STREPTOCOCCAL [None]
  - PYREXIA [None]
  - SLEEP APNOEA SYNDROME [None]
  - SPLENIC INFECTION [None]
  - SUBARACHNOID HAEMORRHAGE [None]
  - SUBDURAL HAEMATOMA [None]
  - SUDDEN DEATH [None]
  - VENTRICULAR HYPERTROPHY [None]
